FAERS Safety Report 7239216 (Version 2)
Quarter: 2014Q1

REPORT INFORMATION
  Report Type: Spontaneous
  Country: GB (occurrence: GB)
  Receive Date: 20100107
  Receipt Date: 20140226
  Transmission Date: 20141002
  Serious: Yes (Other)
  Sender: FDA-Public Use
  Company Number: GB-PFIZER INC-2009315688

PATIENT
  Age: 64 Year
  Sex: Female

DRUGS (24)
  1. PROVERA [Suspect]
     Indication: MENOPAUSE
     Dosage: 2.5 MG, UNK
     Dates: start: 1985, end: 200708
  2. MEDROXYPROGESTERONE ACETATE [Suspect]
     Dosage: UNK
     Dates: end: 20070326
  3. ESTRADIOL [Suspect]
     Indication: MENOPAUSE
     Dosage: 2 MG, UNK
     Dates: start: 1985, end: 20040923
  4. ESTRADIOL [Suspect]
     Dosage: 2 MG, UNK
     Dates: start: 20061108, end: 200708
  5. INDERAL [Suspect]
     Indication: CARDIAC DISORDER
     Dosage: UNK
     Dates: start: 2003
  6. INDERAL [Suspect]
     Indication: MIGRAINE
  7. ESTALIS SEQUI [Suspect]
     Indication: MENOPAUSE
     Dosage: 14 MG, UNK
     Route: 062
     Dates: start: 20010706, end: 200505
  8. TESTIM [Suspect]
     Indication: MENOPAUSE
     Dosage: UNK
     Dates: start: 20060810, end: 200708
  9. ESTRATEST [Suspect]
     Indication: MENOPAUSE
     Dosage: 1.25 MG, UNK
     Dates: start: 20001227, end: 200708
  10. DYAZIDE [Suspect]
     Indication: MENIERE^S DISEASE
     Dosage: UNK
     Dates: start: 2003
  11. CLIMARA [Suspect]
     Indication: MENOPAUSE
     Dosage: UNK
     Dates: start: 1981, end: 2007
  12. CLIMARA [Suspect]
     Indication: MENOPAUSE
  13. ACYCLOVIR [Concomitant]
     Dosage: UNK
     Dates: start: 200801
  14. ACETYLSALICYLIC ACID [Concomitant]
     Dosage: UNK
     Dates: start: 2006
  15. CARDIZEM [Concomitant]
  16. CARISOPRODOL [Concomitant]
     Dosage: UNK
     Dates: start: 1980, end: 2008
  17. CARISOPRODOL [Concomitant]
     Dosage: UNK
     Dates: start: 1990, end: 2000
  18. FENTANYL [Concomitant]
     Dosage: UNK
     Dates: start: 200906
  19. HYDROCODONE [Concomitant]
     Dosage: UNK
     Dates: start: 2006, end: 2009
  20. LOVASTATIN [Concomitant]
     Dosage: UNK
     Dates: start: 2003
  21. OXYCODONE [Concomitant]
     Dosage: UNK
     Dates: start: 200903
  22. PARACETAMOL [Concomitant]
  23. PROMETHAZINE [Concomitant]
     Dosage: UNK
     Dates: start: 2003
  24. TRAZODONE [Concomitant]
     Dosage: UNK
     Dates: start: 2008

REACTIONS (15)
  - Anxiety [Unknown]
  - Blood cholesterol increased [Unknown]
  - Breast cancer [Unknown]
  - Breast mass [Unknown]
  - Breast reconstruction [Unknown]
  - Cardiac disorder [Unknown]
  - Cerebrovascular accident [Unknown]
  - Depression [Unknown]
  - Herpes virus infection [Unknown]
  - Mastectomy [Unknown]
  - Meniere^s disease [Unknown]
  - Migraine [Unknown]
  - Nausea [Unknown]
  - Pain [Unknown]
  - Tremor [Unknown]
